FAERS Safety Report 7900912-8 (Version None)
Quarter: 2011Q4

REPORT INFORMATION
  Report Type: 
  Country: None (occurrence: None)
  Receive Date: 20111108
  Receipt Date: 20111026
  Transmission Date: 20120403
  Serious: No
  Sender: FDA-Public Use
  Company Number: US-ELI_LILLY_AND_COMPANY-US201108006841

PATIENT
  Age: 52 Year
  Sex: Male
  Weight: 109.3 kg

DRUGS (5)
  1. CYMBALTA [Suspect]
     Indication: ANXIETY
     Dosage: 30 MG, QD
     Dates: start: 20110801
  2. CYMBALTA [Interacting]
     Dosage: 60 MG, UNK
     Dates: start: 20110809
  3. AMBIEN [Interacting]
     Indication: INSOMNIA
     Dosage: 10 MG, PRN
  4. CYMBALTA [Interacting]
     Dosage: 30 MG, QD
     Dates: start: 20110818
  5. ULTRAM [Concomitant]
     Indication: BACK PAIN
     Dosage: 50 MG, PRN

REACTIONS (12)
  - CHEST DISCOMFORT [None]
  - POTENTIATING DRUG INTERACTION [None]
  - DYSPNOEA [None]
  - DYSPHAGIA [None]
  - SEDATION [None]
  - MALAISE [None]
  - DRY MOUTH [None]
  - PAINFUL RESPIRATION [None]
  - HEADACHE [None]
  - BLOOD PRESSURE INCREASED [None]
  - DYSGEUSIA [None]
  - FEELING HOT [None]
